FAERS Safety Report 5378925-2 (Version None)
Quarter: 2007Q3

REPORT INFORMATION
  Report Type: 
  Country: None (occurrence: None)
  Receive Date: 20070705
  Receipt Date: 20061227
  Transmission Date: 20080115
  Serious: No
  Sender: FDA-Public Use
  Company Number: A0632633A

PATIENT
  Sex: Male

DRUGS (3)
  1. TRANYLCYPROMINE SULFATE [Suspect]
     Indication: DEPRESSION
     Route: 048
     Dates: start: 20061001
  2. KLONOPIN [Concomitant]
  3. SEROQUEL [Concomitant]

REACTIONS (3)
  - FATIGUE [None]
  - HYPOTENSION [None]
  - POLLAKIURIA [None]
